FAERS Safety Report 15842988 (Version 2)
Quarter: 2019Q1

REPORT INFORMATION
  Report Type: Spontaneous
  Country: US (occurrence: US)
  Receive Date: 20190118
  Receipt Date: 20190126
  Transmission Date: 20190417
  Serious: Yes (Other)
  Sender: FDA-Public Use
  Company Number: PHEH2019US002474

PATIENT
  Age: 41 Year
  Sex: Male
  Weight: 127 kg

DRUGS (1)
  1. GILENYA [Suspect]
     Active Substance: FINGOLIMOD HYDROCHLORIDE
     Indication: MULTIPLE SCLEROSIS
     Dosage: 0.5 MG, QD
     Route: 048
     Dates: start: 201601, end: 20190115

REACTIONS (3)
  - Oropharyngeal squamous cell carcinoma [Unknown]
  - Neck mass [Unknown]
  - Lymphopenia [Unknown]

NARRATIVE: CASE EVENT DATE: 201810
